FAERS Safety Report 17749654 (Version 2)
Quarter: 2020Q2

REPORT INFORMATION
  Report Type: Report from Study
  Country: US (occurrence: US)
  Receive Date: 20200506
  Receipt Date: 20200518
  Transmission Date: 20200714
  Serious: No
  Sender: FDA-Public Use
  Company Number: US-BRISTOL-MYERS SQUIBB COMPANY-BMS-2020-035904

PATIENT
  Age: 74 Year
  Sex: Female
  Weight: 60.78 kg

DRUGS (1)
  1. NIVOLUMAB [Suspect]
     Active Substance: NIVOLUMAB
     Indication: ADENOCARCINOMA
     Dosage: 480 MILLIGRAM, QMO
     Route: 042

REACTIONS (9)
  - Arthralgia [Unknown]
  - Dry eye [Unknown]
  - Off label use [Unknown]
  - Joint swelling [Unknown]
  - Limb discomfort [Unknown]
  - Gait disturbance [Unknown]
  - Peripheral swelling [Unknown]
  - Hypermetropia [Unknown]
  - Nasopharyngitis [Unknown]

NARRATIVE: CASE EVENT DATE: 202004
